FAERS Safety Report 25059016 (Version 1)
Quarter: 2025Q1

REPORT INFORMATION
  Report Type: Spontaneous
  Country: CH (occurrence: CH)
  Receive Date: 20250310
  Receipt Date: 20250310
  Transmission Date: 20250408
  Serious: Yes (Other)
  Sender: REGENERON
  Company Number: CH-BAYER-2025A019269

PATIENT
  Age: 94 Year
  Sex: Female

DRUGS (3)
  1. EYLEA HD [Suspect]
     Active Substance: AFLIBERCEPT
     Indication: Neovascular age-related macular degeneration
     Dates: start: 20250128
  2. EYLEA [Suspect]
     Active Substance: AFLIBERCEPT
     Indication: Neovascular age-related macular degeneration
     Dates: start: 20200928
  3. VABYSMO [Concomitant]
     Active Substance: FARICIMAB-SVOA
     Indication: Neovascular age-related macular degeneration
     Dates: start: 20211128

REACTIONS (4)
  - Peripheral exudative haemorrhagic chorioretinopathy [Unknown]
  - Iridocyclitis [Unknown]
  - Vitreous disorder [Unknown]
  - Visual acuity reduced [Unknown]
